FAERS Safety Report 8776938 (Version 1)
Quarter: 2012Q4

REPORT INFORMATION
  Report Type: 
  Country: US (occurrence: US)
  Receive Date: 20120911
  Receipt Date: 20120911
  Transmission Date: 20130627
  Serious: Yes (Hospitalization)
  Sender: FDA-Public Use
  Company Number: US-GLAXOSMITHKLINE-A0875925A

PATIENT
  Age: 44 Year
  Sex: Male
  Weight: 130.6 kg

DRUGS (1)
  1. AVANDIA [Suspect]
     Indication: DIABETES MELLITUS
     Route: 048
     Dates: start: 2004, end: 2009

REACTIONS (2)
  - Cerebrovascular accident [Unknown]
  - Pulmonary arterial hypertension [Unknown]
